FAERS Safety Report 5771504-4 (Version None)
Quarter: 2008Q2

REPORT INFORMATION
  Report Type: 
  Country: None (occurrence: None)
  Receive Date: 20080613
  Receipt Date: 20080603
  Transmission Date: 20081010
  Serious: Yes (Other)
  Sender: FDA-Public Use
  Company Number: US-BAYER-200812213BCC

PATIENT
  Age: 64 Year
  Sex: Female
  Weight: 77 kg

DRUGS (8)
  1. ALEVE (CAPLET) [Suspect]
     Indication: ARTHRALGIA
     Dosage: TOTAL DAILY DOSE: 880 MG  UNIT DOSE: 220 MG
     Route: 048
  2. PLAQUENIL [Concomitant]
  3. SYNTHROID [Concomitant]
  4. CALCIUM [Concomitant]
  5. FISH OIL [Concomitant]
  6. GARLIC PILLS [Concomitant]
  7. ZOVIRAX [Concomitant]
  8. MULTI-VITAMIN [Concomitant]

REACTIONS (2)
  - GASTRIC ULCER [None]
  - GASTROINTESTINAL ULCER [None]
